FAERS Safety Report 9234284 (Version 1)
Quarter: 2013Q2

REPORT INFORMATION
  Report Type: Spontaneous
  Country: GB (occurrence: GB)
  Receive Date: 20130416
  Receipt Date: 20130416
  Transmission Date: 20140414
  Serious: Yes (Other)
  Sender: FDA-Public Use
  Company Number: PHHY2013GB035120

PATIENT
  Sex: Male

DRUGS (1)
  1. OMEPRAZOLE SANDOZ [Suspect]
     Indication: GASTROOESOPHAGEAL REFLUX DISEASE
     Dosage: 20 MG

REACTIONS (6)
  - Abdominal discomfort [Unknown]
  - Asthenia [Unknown]
  - Product substitution issue [Unknown]
  - Gastrooesophageal reflux disease [Unknown]
  - Headache [Unknown]
  - Malaise [Unknown]
